FAERS Safety Report 19397805 (Version 4)
Quarter: 2022Q1

REPORT INFORMATION
  Report Type: Report from Study
  Country: JP (occurrence: JP)
  Receive Date: 20210610
  Receipt Date: 20220331
  Transmission Date: 20220424
  Serious: Yes (Other)
  Sender: FDA-Public Use
  Company Number: JP-CELLTRION INC.-2020JP024618

PATIENT

DRUGS (10)
  1. INFLIXIMAB-DYYB [Suspect]
     Active Substance: INFLIXIMAB-DYYB
     Indication: Crohn^s disease
     Dosage: 880 MILLIGRAM (WEIGHT: 88 KG)
     Route: 041
     Dates: start: 20181113, end: 20181113
  2. INFLIXIMAB-DYYB [Suspect]
     Active Substance: INFLIXIMAB-DYYB
     Dosage: 900 MILLIGRAM (WEIGHT: 90KG)
     Route: 041
     Dates: start: 20190108, end: 20190108
  3. INFLIXIMAB-DYYB [Suspect]
     Active Substance: INFLIXIMAB-DYYB
     Dosage: 920 MILLIGRAM (WEIGHT: 92KG)
     Route: 041
     Dates: start: 20190305, end: 20190305
  4. INFLIXIMAB-DYYB [Suspect]
     Active Substance: INFLIXIMAB-DYYB
     Dosage: 900 MILLIGRAM (WEIGHT: 90KG)
     Route: 041
     Dates: start: 20190423, end: 20190423
  5. INFLIXIMAB-DYYB [Suspect]
     Active Substance: INFLIXIMAB-DYYB
     Dosage: 455 MILLIGRAM (WEIGHT: 91 KG)
     Route: 041
     Dates: start: 20191105, end: 20191105
  6. INFLIXIMAB-DYYB [Suspect]
     Active Substance: INFLIXIMAB-DYYB
     Dosage: 460 MILLIGRAM (WEIGHT: 92 KG)
     Route: 041
     Dates: start: 20201124, end: 20201124
  7. INFLIXIMAB-DYYB [Suspect]
     Active Substance: INFLIXIMAB-DYYB
     Dosage: 490 MILLIGRAM (WEIGHT: 98 KG)
     Route: 041
     Dates: start: 20211102, end: 20211102
  8. MESALAMINE [Concomitant]
     Active Substance: MESALAMINE
     Dosage: 3000 MILLIGRAM/DAY
     Route: 048
  9. AZATHIOPRINE [Concomitant]
     Active Substance: AZATHIOPRINE
     Indication: Crohn^s disease
     Dosage: 25 MILLIGRAMS/DAY
     Route: 048
     Dates: start: 20210413, end: 20210510
  10. AZATHIOPRINE [Concomitant]
     Active Substance: AZATHIOPRINE
     Dosage: 50 MILLIGRAMS/DAY
     Route: 048
     Dates: start: 20210511

REACTIONS (16)
  - Ileus [Recovered/Resolved]
  - Pharyngotonsillitis [Recovered/Resolved]
  - Pharyngotonsillitis [Recovered/Resolved]
  - Rectal polyp [Recovered/Resolved]
  - Seasonal allergy [Recovered/Resolved]
  - Seasonal allergy [Recovered/Resolved]
  - Subileus [Recovered/Resolved]
  - Hepatic function abnormal [Recovered/Resolved]
  - Anaemia [Not Recovered/Not Resolved]
  - Nasopharyngitis [Recovered/Resolved]
  - Oropharyngeal pain [Recovered/Resolved]
  - Overdose [Unknown]
  - Product use issue [Unknown]
  - Therapeutic product effect incomplete [Unknown]
  - Off label use [Unknown]
  - Product use issue [Unknown]

NARRATIVE: CASE EVENT DATE: 20190223
